FAERS Safety Report 5599664-9 (Version None)
Quarter: 2008Q1

REPORT INFORMATION
  Report Type: 
  Country: None (occurrence: None)
  Receive Date: 20080118
  Receipt Date: 20080118
  Transmission Date: 20080703
  Serious: Yes (Hospitalization)
  Sender: FDA-Public Use
  Company Number: None

PATIENT
  Sex: Female
  Weight: 56.6996 kg

DRUGS (2)
  1. LEVAQUIN [Suspect]
     Indication: PNEUMONIA
     Dosage: 750 MG 1/DAY - 10 DAY
     Dates: start: 20070901
  2. FLAGYL [Suspect]
     Indication: DIVERTICULITIS
     Dosage: 250 MG 8/DAY - 10 DAYS
     Dates: start: 20070901

REACTIONS (2)
  - MALAISE [None]
  - NONSPECIFIC REACTION [None]
